FAERS Safety Report 21608460 (Version 6)
Quarter: 2024Q1

REPORT INFORMATION
  Report Type: Spontaneous
  Country: US (occurrence: US)
  Receive Date: 20221117
  Receipt Date: 20240109
  Transmission Date: 20240410
  Serious: Yes (Other)
  Sender: FDA-Public Use
  Company Number: US-PFIZER INC-PV202200104958

PATIENT
  Age: 73 Year
  Sex: Female
  Weight: 77.11 kg

DRUGS (6)
  1. IBRANCE [Suspect]
     Active Substance: PALBOCICLIB
     Indication: Dedifferentiated liposarcoma
     Dosage: DAILY, 3 WEEKS ON 1 WEEK OFF, CYCLE COMPLETED: 2
     Route: 048
     Dates: start: 202204
  2. IBRANCE [Suspect]
     Active Substance: PALBOCICLIB
     Indication: Soft tissue sarcoma
     Dosage: 2 WEEKS ON 1 WEEK OFF, C3
     Route: 048
     Dates: start: 20220914
  3. IBRANCE [Suspect]
     Active Substance: PALBOCICLIB
     Dosage: EVERY DAY FOR TWO WEEKS ON AND ONE WEEK OFF
     Route: 048
     Dates: start: 20221114
  4. XANAX [Concomitant]
     Active Substance: ALPRAZOLAM
     Dosage: 0.25 MG, AS NEEDED
     Route: 048
  5. LIPITOR [Concomitant]
     Active Substance: ATORVASTATIN CALCIUM
     Dosage: 20 MG, EVERY 48 HOURS
     Route: 048
  6. ZOLOFT [Concomitant]
     Active Substance: SERTRALINE HYDROCHLORIDE
     Dosage: TAKE 1 TABLET BY MOUTH EVERY DAY IN THE MORNING
     Route: 048

REACTIONS (5)
  - Neutropenia [Unknown]
  - Off label use [Unknown]
  - Full blood count abnormal [Not Recovered/Not Resolved]
  - Stomatitis [Not Recovered/Not Resolved]
  - Night sweats [Not Recovered/Not Resolved]

NARRATIVE: CASE EVENT DATE: 20221101
